FAERS Safety Report 5389398-8 (Version None)
Quarter: 2007Q3

REPORT INFORMATION
  Report Type: 
  Country: None (occurrence: None)
  Receive Date: 20070713
  Receipt Date: 20070713
  Transmission Date: 20080115
  Serious: Yes (Hospitalization)
  Sender: FDA-Public Use
  Company Number: None

PATIENT
  Age: 57 Year
  Sex: Male
  Weight: 104.3273 kg

DRUGS (8)
  1. BORTEZOMIB [Suspect]
     Indication: MANTLE CELL LYMPHOMA
     Dosage: 2.9MG DAY 1+4 IV
     Route: 042
     Dates: start: 20070620
  2. BORTEZOMIB [Suspect]
     Indication: MANTLE CELL LYMPHOMA
     Dosage: 2.9MG DAY 1+4 IV
     Route: 042
     Dates: start: 20070623
  3. CYCLOPHOSPHAMIDE [Suspect]
     Indication: MANTLE CELL LYMPHOMA
     Dosage: 660MG 6DOSE IV
     Route: 042
     Dates: start: 20070620
  4. CYCLOPHOSPHAMIDE [Suspect]
     Indication: MANTLE CELL LYMPHOMA
     Dosage: 660MG 6DOSE IV
     Route: 042
     Dates: start: 20070623
  5. RITUXIMAB 125MG IV DAY [Suspect]
     Indication: MANTLE CELL LYMPHOMA
     Dates: start: 20070101
  6. DOXORUBICIN HCL [Suspect]
     Dosage: 55MG DAY1-2 CIV
     Route: 042
     Dates: start: 20070620, end: 20070622
  7. DEXAMETHASONE 0.5MG TAB [Suspect]
     Dosage: 40MG 4D PO
     Route: 048
     Dates: start: 20070620, end: 20070623
  8. VINCRISTINE [Suspect]

REACTIONS (5)
  - CHILLS [None]
  - FEBRILE NEUTROPENIA [None]
  - LEUKOPENIA [None]
  - MALAISE [None]
  - PAIN IN JAW [None]
